FAERS Safety Report 15109936 (Version 1)
Quarter: 2018Q3

REPORT INFORMATION
  Report Type: Spontaneous
  Country: TR (occurrence: TR)
  Receive Date: 20180705
  Receipt Date: 20180705
  Transmission Date: 20181010
  Serious: Yes (Other)
  Sender: FDA-Public Use
  Company Number: TR-LPDUSPRD-20181172

PATIENT
  Age: 32 Year
  Sex: Female

DRUGS (1)
  1. FERINJECT [Suspect]
     Active Substance: FERRIC CARBOXYMALTOSE
     Dosage: UNKNOWN
     Route: 065
     Dates: start: 20180523, end: 20180523

REACTIONS (3)
  - Asphyxia [Unknown]
  - Swollen tongue [Unknown]
  - Disability [Unknown]

NARRATIVE: CASE EVENT DATE: 2018
